FAERS Safety Report 10786490 (Version 1)
Quarter: 2015Q1

REPORT INFORMATION
  Report Type: Spontaneous
  Country: US (occurrence: US)
  Receive Date: 20150211
  Receipt Date: 20150211
  Transmission Date: 20150721
  Serious: No
  Sender: FDA-Public Use
  Company Number: US-GLAXOSMITHKLINE-A1060923A

PATIENT

DRUGS (1)
  1. ROPINIROLE TABLETS [Suspect]
     Active Substance: ROPINIROLE
     Indication: PARKINSONISM
     Route: 065

REACTIONS (2)
  - Product substitution issue [None]
  - Therapeutic response decreased [Unknown]
